FAERS Safety Report 8392757-2 (Version None)
Quarter: 2012Q2

REPORT INFORMATION
  Report Type: 
  Country: None (occurrence: None)
  Receive Date: 20120529
  Receipt Date: 20111003
  Transmission Date: 20120825
  Serious: No
  Sender: FDA-Public Use
  Company Number: US-MYLANLABS-2011S1020681

PATIENT
  Sex: Male

DRUGS (2)
  1. AMITRIPTYLINE HCL [Suspect]
     Dosage: PRN
     Route: 048
  2. AMITRIPTYLINE HCL [Suspect]
     Dosage: PRN
     Route: 048

REACTIONS (3)
  - DRUG EFFECT DECREASED [None]
  - DRUG ADMINISTRATION ERROR [None]
  - EPIGASTRIC DISCOMFORT [None]
